FAERS Safety Report 9442871 (Version 1)
Quarter: 2013Q3

REPORT INFORMATION
  Report Type: Spontaneous
  Country: US (occurrence: US)
  Receive Date: 20130806
  Receipt Date: 20130806
  Transmission Date: 20140515
  Serious: Yes (Other)
  Sender: FDA-Public Use
  Company Number: US-ACTAVIS-2013-13190

PATIENT
  Age: 14 Year
  Sex: Female

DRUGS (2)
  1. GEMCITABINE (ATLLC) [Suspect]
     Indication: SYNOVIAL SARCOMA
     Dosage: 900 MG/M2, ON DAYS 1 AND 8, 4 CYCLES
     Route: 065
  2. DOCETAXEL (ACTAVIS) [Suspect]
     Indication: SYNOVIAL SARCOMA
     Dosage: 100 MG/M2, ON DAY 8, 4 CYCLES
     Route: 065

REACTIONS (5)
  - Compartment syndrome [Recovered/Resolved with Sequelae]
  - Recall phenomenon [Recovered/Resolved with Sequelae]
  - Myositis [Not Recovered/Not Resolved]
  - Muscle oedema [Not Recovered/Not Resolved]
  - Off label use [Unknown]
